FAERS Safety Report 22366565 (Version 3)
Quarter: 2023Q2

REPORT INFORMATION
  Report Type: Spontaneous
  Country: GB (occurrence: GB)
  Receive Date: 20230525
  Receipt Date: 20230612
  Transmission Date: 20230722
  Serious: Yes (Hospitalization, Other)
  Sender: FDA-Public Use
  Company Number: GB-BRISTOL-MYERS SQUIBB COMPANY-2023-067827

PATIENT
  Age: 53 Year
  Sex: Female

DRUGS (7)
  1. CARBOPLATIN [Suspect]
     Active Substance: CARBOPLATIN
     Indication: Squamous cell carcinoma of the cervix
     Dosage: 3 WEEKLY, CYCLE 1
     Dates: start: 20230117
  2. CARBOPLATIN [Suspect]
     Active Substance: CARBOPLATIN
     Dosage: CYCLE 2
     Dates: start: 20230202
  3. CARBOPLATIN [Suspect]
     Active Substance: CARBOPLATIN
     Dosage: CYCLE 3
     Dates: start: 20230315
  4. CARBOPLATIN [Suspect]
     Active Substance: CARBOPLATIN
     Dosage: CYCLE 4
  5. CARBOPLATIN [Suspect]
     Active Substance: CARBOPLATIN
     Dosage: CYCLE 5
     Dates: start: 20230502
  6. PACLITAXEL [Suspect]
     Active Substance: PACLITAXEL
     Indication: Squamous cell carcinoma of the cervix
     Dosage: 3 WEEKLY, CYCLE 1
     Dates: start: 20230117, end: 20230117
  7. ABRAXANE [Suspect]
     Active Substance: PACLITAXEL
     Indication: Squamous cell carcinoma of the cervix
     Dosage: UNK
     Dates: start: 20230315, end: 20230315

REACTIONS (6)
  - Liver function test abnormal [Unknown]
  - Alanine aminotransferase increased [Unknown]
  - Acute kidney injury [Unknown]
  - Myelosuppression [Unknown]
  - Hypersensitivity [Unknown]
  - Off label use [Unknown]

NARRATIVE: CASE EVENT DATE: 20230117
